FAERS Safety Report 7233411-X (Version None)
Quarter: 2011Q1

REPORT INFORMATION
  Report Type: 
  Country: None (occurrence: None)
  Receive Date: 20110119
  Receipt Date: 20110110
  Transmission Date: 20110831
  Serious: No
  Sender: FDA-Public Use
  Company Number: BR-ASTRAZENECA-2011SE01877

PATIENT
  Age: 75 Year
  Sex: Female
  Weight: 42 kg

DRUGS (2)
  1. DIOVAN [Concomitant]
     Indication: HYPERTENSION
     Route: 048
     Dates: start: 20100701
  2. SEROQUEL [Suspect]
     Indication: DEPRESSION
     Route: 048
     Dates: start: 20100101

REACTIONS (1)
  - PLATELET COUNT DECREASED [None]
